FAERS Safety Report 8112848-0 (Version None)
Quarter: 2012Q1

REPORT INFORMATION
  Report Type: 
  Country: None (occurrence: None)
  Receive Date: 20120131
  Receipt Date: 20120123
  Transmission Date: 20120608
  Serious: Yes (Hospitalization, Other)
  Sender: FDA-Public Use
  Company Number: 1000026694

PATIENT
  Age: 72 Year
  Sex: Male

DRUGS (19)
  1. SYMBICORT [Concomitant]
  2. GUAIFENESIN [Concomitant]
  3. FLONASE (BLUTICASONE PROPIONATE) [Concomitant]
  4. LORAZEPAM [Concomitant]
  5. ARTHROTEC [Concomitant]
  6. VICODIN ES [Concomitant]
  7. DALIRESP [Suspect]
     Indication: CHRONIC OBSTRUCTIVE PULMONARY DISEASE
     Dosage: 500 MCG (500 MCG, 1 IN 1 D), ORAL
     Route: 048
     Dates: start: 20110715, end: 20111219
  8. VENTOLIN HFA (SALBUTAMOL SULFATE) [Concomitant]
  9. FLOMAX [Concomitant]
  10. CRESTOR [Concomitant]
  11. CARAFATE [Concomitant]
  12. ZYRTEC [Concomitant]
  13. SPIRIVA [Concomitant]
  14. PREDNISONE TAB [Concomitant]
  15. CITRACAL (CALCIUM) [Concomitant]
  16. BYSTOLIC [Concomitant]
  17. XOPENEX (TIOTROPOIM BROMIDE) [Concomitant]
  18. CELEXA [Concomitant]
  19. PRILOSEC (ESOMEPRAZOLE) [Concomitant]

REACTIONS (7)
  - ORTHOSTATIC HYPOTENSION [None]
  - SYNCOPE [None]
  - RHINORRHOEA [None]
  - DECREASED APPETITE [None]
  - WEIGHT DECREASED [None]
  - ABDOMINAL PAIN [None]
  - DIARRHOEA [None]
